FAERS Safety Report 5853062-9 (Version None)
Quarter: 2008Q3

REPORT INFORMATION
  Report Type: 
  Country: None (occurrence: None)
  Receive Date: 20080821
  Receipt Date: 20080811
  Transmission Date: 20090109
  Serious: Yes (Hospitalization)
  Sender: FDA-Public Use
  Company Number: BR-ABBOTT-08P-020-0462367-00

PATIENT
  Sex: Male
  Weight: 65 kg

DRUGS (4)
  1. HUMIRA [Suspect]
     Indication: CROHN'S DISEASE
     Route: 058
     Dates: start: 20080616
  2. ZAPRESS [Concomitant]
     Indication: PROPHYLAXIS
     Route: 048
     Dates: start: 20050101
  3. GLIBOMET [Concomitant]
     Indication: DIABETES MELLITUS
     Dosage: 5/1000MG; TWO TABLETS DAILY
     Route: 048
     Dates: start: 20020101
  4. SIMVASTATIN [Concomitant]
     Indication: CARDIAC DISORDER
     Route: 048
     Dates: start: 20050101

REACTIONS (7)
  - FATIGUE [None]
  - GAIT DISTURBANCE [None]
  - HAEMATOCHEZIA [None]
  - INTESTINAL ULCER [None]
  - PAIN IN EXTREMITY [None]
  - SKIN ULCER [None]
  - SKIN ULCER HAEMORRHAGE [None]
